FAERS Safety Report 18917431 (Version 2)
Quarter: 2021Q2

REPORT INFORMATION
  Report Type: Report from Study
  Country: US (occurrence: US)
  Receive Date: 20210219
  Receipt Date: 20210616
  Transmission Date: 20210717
  Serious: Yes (Hospitalization, Other)
  Sender: FDA-Public Use
  Company Number: US-SHIRE-US202008541

PATIENT
  Age: 55 Year
  Sex: Female

DRUGS (1)
  1. CUVITRU [Suspect]
     Active Substance: HUMAN IMMUNOGLOBULIN G
     Indication: PRIMARY IMMUNODEFICIENCY SYNDROME
     Route: 065

REACTIONS (8)
  - Infusion site extravasation [Unknown]
  - Eye infection [Unknown]
  - Sinusitis [Unknown]
  - Ear pain [Unknown]
  - Lyme disease [Unknown]
  - Lymphadenopathy [Unknown]
  - Spinal operation [Unknown]
  - Illness [Not Recovered/Not Resolved]

NARRATIVE: CASE EVENT DATE: 202011
